FAERS Safety Report 14712462 (Version 1)
Quarter: 2018Q2

REPORT INFORMATION
  Report Type: Report from Study
  Country: None (occurrence: US)
  Receive Date: 20180404
  Receipt Date: 20180404
  Transmission Date: 20180711
  Serious: Yes (Hospitalization, Other)
  Sender: FDA-Public Use
  Company Number: US-ABBVIE-18K-163-2302989-00

PATIENT
  Sex: Male
  Weight: 107.14 kg

DRUGS (1)
  1. HUMIRA [Suspect]
     Active Substance: ADALIMUMAB
     Indication: RHEUMATOID ARTHRITIS
     Route: 058
     Dates: end: 2018

REACTIONS (3)
  - Osteoarthritis [Recovered/Resolved]
  - Meniscus injury [Recovered/Resolved]
  - Limb deformity [Recovered/Resolved]

NARRATIVE: CASE EVENT DATE: 2011
